FAERS Safety Report 6036706-0 (Version None)
Quarter: 2009Q1

REPORT INFORMATION
  Report Type: 
  Country: None (occurrence: None)
  Receive Date: 20090114
  Receipt Date: 20090109
  Transmission Date: 20090719
  Serious: Yes (Hospitalization, Other)
  Sender: FDA-Public Use
  Company Number: DE-BAYER-200831986GPV

PATIENT
  Age: 47 Year
  Sex: Female
  Weight: 104 kg

DRUGS (1)
  1. MIRENA [Suspect]
     Indication: MENORRHAGIA
     Route: 015
     Dates: start: 20000101, end: 20050101

REACTIONS (4)
  - BREAST CANCER IN SITU [None]
  - CERVIX CARCINOMA [None]
  - ENDOMETRIAL CANCER [None]
  - METASTASES TO LUNG [None]
